FAERS Safety Report 23269854 (Version 2)
Quarter: 2023Q4

REPORT INFORMATION
  Report Type: Spontaneous
  Country: US (occurrence: US)
  Receive Date: 20231207
  Receipt Date: 20231215
  Transmission Date: 20240110
  Serious: Yes (Other)
  Sender: FDA-Public Use
  Company Number: US-BRISTOL-MYERS SQUIBB COMPANY-2023-172789

PATIENT
  Age: 85 Year
  Sex: Female

DRUGS (1)
  1. LENALIDOMIDE [Suspect]
     Active Substance: LENALIDOMIDE
     Indication: Follicular lymphoma
     Dosage: FREQUENCY: MOUTH EVERY DAY FOR 28 DAYS
     Route: 048
     Dates: start: 20231203

REACTIONS (3)
  - Bladder disorder [Recovering/Resolving]
  - Sinusitis [Not Recovered/Not Resolved]
  - Off label use [Unknown]
